FAERS Safety Report 17129319 (Version 1)
Quarter: 2019Q4

REPORT INFORMATION
  Report Type: Spontaneous
  Country: US (occurrence: US)
  Receive Date: 20191115
  Receipt Date: 20191115
  Transmission Date: 20200122
  Serious: Yes (Other)
  Sender: FDA-Public Use
  Company Number: None

PATIENT
  Age: 44 Year
  Sex: Male

DRUGS (1)
  1. OCALIVA [Suspect]
     Active Substance: OBETICHOLIC ACID
     Dosage: ?          OTHER DOSE:1 TAB;?
     Route: 048
     Dates: start: 20191023

REACTIONS (2)
  - Pruritus [None]
  - Vomiting [None]

NARRATIVE: CASE EVENT DATE: 20191028
